FAERS Safety Report 10401961 (Version 1)
Quarter: 2014Q3

REPORT INFORMATION
  Report Type: Spontaneous
  Country: US (occurrence: US)
  Receive Date: 20140822
  Receipt Date: 20140822
  Transmission Date: 20150326
  Serious: Yes (Hospitalization)
  Sender: FDA-Public Use
  Company Number: US-ASTRAZENECA-2014SE60990

PATIENT
  Sex: Female

DRUGS (2)
  1. TOPROL XL [Suspect]
     Active Substance: METOPROLOL SUCCINATE
     Dosage: GENERIC, 100 MG IN THE MORNING 25 MG IN THE EVENING
     Route: 065
  2. TOPROL XL [Suspect]
     Active Substance: METOPROLOL SUCCINATE
     Dosage: 100 MG IN THE MORNING 25 MG IN THE EVENING
     Route: 048

REACTIONS (7)
  - Palpitations [Unknown]
  - Off label use [Unknown]
  - Arrhythmia [Unknown]
  - Blood pressure decreased [Unknown]
  - Malaise [Unknown]
  - Adverse drug reaction [Unknown]
  - Hypertension [Unknown]
